FAERS Safety Report 6178162-8 (Version None)
Quarter: 2009Q2

REPORT INFORMATION
  Report Type: 
  Country: None (occurrence: None)
  Receive Date: 20090504
  Receipt Date: 20090217
  Transmission Date: 20091009
  Serious: No
  Sender: FDA-Public Use
  Company Number: US-ALEXION-A200900127

PATIENT
  Sex: Female

DRUGS (12)
  1. SOLIRIS [Suspect]
     Indication: PAROXYSMAL NOCTURNAL HAEMOGLOBINURIA
     Dosage: UNK
     Dates: start: 20090217
  2. BENADRYL [Concomitant]
  3. MOTRIN [Concomitant]
     Indication: NECK PAIN
     Dosage: 800 MG, SINGLE
     Route: 048
     Dates: start: 20090217, end: 20090217
  4. IMITREX                            /01044801/ [Concomitant]
     Indication: MIGRAINE
     Dosage: 25 MG, PRN
     Route: 048
  5. FOLIC ACID [Concomitant]
     Indication: PAROXYSMAL NOCTURNAL HAEMOGLOBINURIA
     Dosage: 1 MG, QD
     Route: 048
  6. CYMBALTA [Concomitant]
     Indication: MIGRAINE
     Dosage: 90 MG, QD
     Route: 048
  7. SINGULAIR [Concomitant]
     Indication: ASTHMA
     Dosage: 10 MG, QD
     Route: 048
  8. ADVAIR HFA [Concomitant]
     Indication: ASTHMA
     Dosage: 45/21
     Route: 055
  9. VERAMYST [Concomitant]
     Indication: HYPERSENSITIVITY
     Dosage: 27.5 1 SPRAY PER NOSTRIL
     Route: 045
  10. ZINC [Concomitant]
     Dosage: 220 MG, QD
     Route: 048
  11. MENINGOCOCCAL VACCINE [Concomitant]
     Dosage: UNK
  12. INDOMETHACIN [Concomitant]
     Indication: NECK PAIN
     Dosage: UNK
     Dates: start: 20090216, end: 20090216

REACTIONS (3)
  - NAUSEA [None]
  - PRURITUS [None]
  - THROAT IRRITATION [None]
